FAERS Safety Report 8338440-0 (Version None)
Quarter: 2012Q2

REPORT INFORMATION
  Report Type: 
  Country: None (occurrence: None)
  Receive Date: 20120504
  Receipt Date: 20120425
  Transmission Date: 20120825
  Serious: Yes (Death)
  Sender: FDA-Public Use
  Company Number: US-VALEANT-2012VX001977

PATIENT
  Sex: Female

DRUGS (5)
  1. CALCIUM FOLINATE [Suspect]
     Dosage: DOSE UNIT:400
     Route: 042
  2. VORINOSTAT [Suspect]
     Route: 048
  3. FLUOROURACIL [Suspect]
     Dosage: DOSE UNIT:400
     Route: 040
  4. ANTIEMETICS AND ANTINAUSEANTS [Concomitant]
     Route: 065
  5. FLUOROURACIL [Suspect]
     Dosage: DOSE UNIT:2400
     Route: 042

REACTIONS (2)
  - PNEUMONITIS [None]
  - RESPIRATORY FAILURE [None]
